FAERS Safety Report 16941333 (Version 4)
Quarter: 2020Q4

REPORT INFORMATION
  Report Type: Report from Study
  Country: US (occurrence: US)
  Receive Date: 20191021
  Receipt Date: 20201218
  Transmission Date: 20210113
  Serious: Yes (Death, Life-Threatening, Other)
  Sender: FDA-Public Use
  Company Number: NVSC2019US005333

PATIENT
  Age: 23 Year
  Sex: Male

DRUGS (3)
  1. CYCLOPHOSPHAMIDE. [Concomitant]
     Active Substance: CYCLOPHOSPHAMIDE
     Indication: CHEMOTHERAPY
     Dosage: UNK
     Route: 065
  2. FLUDARABINE [Concomitant]
     Active Substance: FLUDARABINE PHOSPHATE
     Indication: CHEMOTHERAPY
     Dosage: UNK
     Route: 065
  3. KYMRIAH [Suspect]
     Active Substance: TISAGENLECLEUCEL
     Indication: B-CELL TYPE ACUTE LEUKAEMIA
     Dosage: UNK UNK, ONCE/SINGLE
     Route: 041
     Dates: start: 20190521

REACTIONS (22)
  - Cytopenia [Unknown]
  - Neutropenia [Unknown]
  - Cytomegalovirus infection [Unknown]
  - Haematocrit decreased [Unknown]
  - Herpes simplex [Unknown]
  - White blood cell count decreased [Unknown]
  - Coronavirus infection [Unknown]
  - Respiratory failure [Fatal]
  - Organ failure [Unknown]
  - Hypogammaglobulinaemia [Recovered/Resolved]
  - BK virus infection [Unknown]
  - Viral sinusitis [Unknown]
  - Platelet count decreased [Recovered/Resolved]
  - Nervous system disorder [Unknown]
  - Cytokine release syndrome [Recovered/Resolved]
  - Human herpesvirus 6 infection [Unknown]
  - Lymphocyte count decreased [Unknown]
  - Haemoglobin decreased [Unknown]
  - Pyrexia [Unknown]
  - Enterococcal infection [Unknown]
  - Pneumonia [Unknown]
  - Gastrointestinal infection [Unknown]
